FAERS Safety Report 9396112 (Version 1)
Quarter: 2013Q3

REPORT INFORMATION
  Report Type: Spontaneous
  Country: AU (occurrence: None)
  Receive Date: 20130708
  Receipt Date: 20130708
  Transmission Date: 20140515
  Serious: Yes (Other)
  Sender: FDA-Public Use
  Company Number: 2013AP006367

PATIENT
  Age: 56 Year
  Sex: Female

DRUGS (1)
  1. AMLODIPINE [Suspect]
     Indication: ASTHMA

REACTIONS (3)
  - Local swelling [None]
  - Hypersensitivity [None]
  - Hypertension [None]
